FAERS Safety Report 21505688 (Version 1)
Quarter: 2022Q4

REPORT INFORMATION
  Report Type: Spontaneous
  Country: US (occurrence: None)
  Receive Date: 20221026
  Receipt Date: 20221026
  Transmission Date: 20230113
  Serious: Yes (Life-Threatening, Hospitalization, Other)
  Sender: FDA-Public Use
  Company Number: US-MLMSERVICE-20221007-3838997-1

PATIENT
  Age: 51 Year
  Sex: Female

DRUGS (5)
  1. CEFAZOLIN [Suspect]
     Active Substance: CEFAZOLIN
     Indication: Antibiotic prophylaxis
     Route: 065
  2. CISATRACURIUM [Concomitant]
     Active Substance: CISATRACURIUM
     Indication: Induction of anaesthesia
     Dosage: UNKNOWN
     Route: 065
  3. FENTANYL [Concomitant]
     Active Substance: FENTANYL
     Indication: Induction of anaesthesia
     Dosage: UNKNOWN
     Route: 065
  4. MIDAZOLAM [Concomitant]
     Active Substance: MIDAZOLAM
     Indication: Induction of anaesthesia
     Dosage: UNKNOWN
     Route: 065
  5. METHYLPREDNISOLONE [Concomitant]
     Active Substance: METHYLPREDNISOLONE
     Indication: Immunosuppressant drug therapy
     Dosage: UNKNOWN
     Route: 065

REACTIONS (2)
  - Arteriovenous fistula thrombosis [Recovering/Resolving]
  - Anaphylactic reaction [Recovering/Resolving]
